FAERS Safety Report 6185798-7 (Version None)
Quarter: 2009Q2

REPORT INFORMATION
  Report Type: 
  Country: None (occurrence: None)
  Receive Date: 20090511
  Receipt Date: 20090501
  Transmission Date: 20091009
  Serious: Yes (Death, Hospitalization)
  Sender: FDA-Public Use
  Company Number: A0729743A

PATIENT
  Age: 75 Year
  Sex: Male
  Weight: 85.5 kg

DRUGS (6)
  1. AVANDIA [Suspect]
     Indication: DIABETES MELLITUS
     Dosage: 4MG TWICE PER DAY
     Route: 048
     Dates: start: 20050512, end: 20070413
  2. TOPROL-XL [Concomitant]
  3. METFORMIN HCL [Concomitant]
     Dates: start: 20050512, end: 20051010
  4. DIOVAN [Concomitant]
     Dates: start: 20050728, end: 20051010
  5. PLAVIX [Concomitant]
     Dates: start: 20050728
  6. LUMIGAN [Concomitant]
     Dates: start: 20050728, end: 20051010

REACTIONS (2)
  - CARDIAC FAILURE CONGESTIVE [None]
  - CARDIO-RESPIRATORY ARREST [None]
